FAERS Safety Report 9097269 (Version 1)
Quarter: 2013Q1

REPORT INFORMATION
  Report Type: Spontaneous
  Country: GB (occurrence: GB)
  Receive Date: 20130212
  Receipt Date: 20130212
  Transmission Date: 20140127
  Serious: Yes (Other)
  Sender: FDA-Public Use
  Company Number: PHHY2013GB011214

PATIENT
  Sex: Female

DRUGS (5)
  1. DIAZEPAM [Suspect]
  2. LORAZEPAM [Interacting]
     Dosage: 0.5 MG FOR 20 DAYS
  3. CITALOPRAM [Interacting]
     Dosage: 40 MG
  4. TEMAZEPAM [Interacting]
  5. ZOPICLONE [Interacting]
     Dosage: 3.5 MG, IN THE EVENING

REACTIONS (7)
  - Anxiety [Unknown]
  - Hyperhidrosis [Unknown]
  - Insomnia [Unknown]
  - Somnolence [Unknown]
  - Drug interaction [Unknown]
  - Incorrect dose administered [Unknown]
  - Medication error [Unknown]
